FAERS Safety Report 6971762-4 (Version None)
Quarter: 2010Q3

REPORT INFORMATION
  Report Type: 
  Country: None (occurrence: None)
  Receive Date: 20100903
  Receipt Date: 20100810
  Transmission Date: 20110219
  Serious: Yes (Death)
  Sender: FDA-Public Use
  Company Number: JP-SOLVAY-00310004719

PATIENT
  Age: 37 Year
  Sex: Male

DRUGS (1)
  1. FLUVOXAMINE MALEATE [Suspect]
     Indication: DEPRESSION
     Dosage: 50 MILLIGRAM(S) ORAL
     Route: 048
     Dates: start: 20100702, end: 20100704

REACTIONS (1)
  - COMPLETED SUICIDE [None]
